FAERS Safety Report 18632183 (Version 1)
Quarter: 2020Q4

REPORT INFORMATION
  Report Type: Spontaneous
  Country: US (occurrence: US)
  Receive Date: 20201217
  Receipt Date: 20201217
  Transmission Date: 20210114
  Serious: No
  Sender: FDA-Public Use
  Company Number: US-DRREDDYS-USA/USA/20/0129814

PATIENT
  Age: 37 Year
  Sex: Female

DRUGS (2)
  1. ZENATANE [Suspect]
     Active Substance: ISOTRETINOIN
     Indication: PRODUCT USED FOR UNKNOWN INDICATION
     Dosage: RMA ISSUE DATE; 7/23/2020 3:29:37 PM
     Route: 048
  2. ZENATANE [Suspect]
     Active Substance: ISOTRETINOIN
     Dosage: RMA ISSUE DATE;6/16/2020 11:01:52 AM, 8/28/2020 3:25:56 PM, 10/2/2020 3:40:45 PM AND 10/30/2020 3:42
     Route: 048

REACTIONS (1)
  - Photophobia [Unknown]
